FAERS Safety Report 7914675-3 (Version None)
Quarter: 2011Q4

REPORT INFORMATION
  Report Type: 
  Country: None (occurrence: None)
  Receive Date: 20111115
  Receipt Date: 20111108
  Transmission Date: 20120403
  Serious: Yes (Life-Threatening)
  Sender: FDA-Public Use
  Company Number: PHEH2011US04465

PATIENT
  Sex: Female

DRUGS (6)
  1. RECLAST [Suspect]
     Route: 042
     Dates: start: 20110913
  2. DILANTIN [Concomitant]
     Dosage: UNK UKN, UNK
  3. PHENOBARBITAL TAB [Concomitant]
  4. FOSAMAX [Suspect]
  5. ASPIRIN [Concomitant]
     Dosage: UNK UKN, UNK
  6. VITAMIN TAB [Concomitant]
     Dosage: UNK UKN, UNK

REACTIONS (6)
  - FEELING ABNORMAL [None]
  - CHEST PAIN [None]
  - PAIN [None]
  - BACK PAIN [None]
  - MALAISE [None]
  - DYSPNOEA [None]
